FAERS Safety Report 4493936-7 (Version None)
Quarter: 2004Q4

REPORT INFORMATION
  Report Type: 
  Country: None (occurrence: None)
  Receive Date: 20041002
  Receipt Date: 20041020
  Transmission Date: 20050328
  Serious: Yes (Other)
  Sender: FDA-Public Use
  Company Number: USA041081830

PATIENT
  Age: 15 Year
  Sex: Female

DRUGS (2)
  1. STRATTERA [Suspect]
     Dosage: 60 MG/1 DAY
  2. AMBIEN [Concomitant]

REACTIONS (6)
  - AMNESIA [None]
  - HOMICIDAL IDEATION [None]
  - MEDICATION ERROR [None]
  - SCRATCH [None]
  - SELF MUTILATION [None]
  - THERMAL BURN [None]
